FAERS Safety Report 4752807-9 (Version None)
Quarter: 2005Q3

REPORT INFORMATION
  Report Type: 
  Country: None (occurrence: None)
  Receive Date: 20050823
  Receipt Date: 20050329
  Transmission Date: 20060218
  Serious: Yes (Other)
  Sender: FDA-Public Use
  Company Number: 2005051634

PATIENT
  Age: 72 Year
  Sex: Female
  Weight: 86.1834 kg

DRUGS (8)
  1. NORVASC [Suspect]
     Indication: CHEST PAIN
     Dosage: ORAL
     Route: 048
     Dates: start: 20040601, end: 20040101
  2. NORVASC [Suspect]
     Indication: HYPERTENSION
     Dosage: ORAL
     Route: 048
     Dates: start: 20040601, end: 20040101
  3. OTHER NUTRIENTS (OTHER NUTRIENTS) [Suspect]
     Indication: ILL-DEFINED DISORDER
  4. GENERAL NUTRIENTS (GENERAL NUTRIENTS) [Suspect]
     Indication: ILL-DEFINED DISORDER
  5. LEVOTHYROXINE SODIUM [Concomitant]
  6. CANDESARTAN CILEXETIL (CANDESARTAN CILEXETIL) [Concomitant]
  7. MONTELUKAST SODIUM (MONTELUKAST SODIUM) [Concomitant]
  8. ALPRAZOLAM [Concomitant]

REACTIONS (2)
  - CARDIOVASCULAR DISORDER [None]
  - PURPURA [None]
